FAERS Safety Report 5749923-1 (Version None)
Quarter: 2008Q2

REPORT INFORMATION
  Report Type: 
  Country: None (occurrence: None)
  Receive Date: 20080527
  Receipt Date: 20080521
  Transmission Date: 20081010
  Serious: Yes (Other)
  Sender: FDA-Public Use
  Company Number: US-ELI_LILLY_AND_COMPANY-US200805004402

PATIENT
  Age: 50 Year
  Sex: Female

DRUGS (20)
  1. HUMULIN 70/30 [Suspect]
     Dosage: UNK, UNK
     Dates: start: 20040101
  2. COREG [Concomitant]
  3. PHOSLO [Concomitant]
  4. CALCIUM [Concomitant]
  5. LISINOPRIL [Concomitant]
  6. XANAX [Concomitant]
  7. ZOLOFT [Concomitant]
  8. SEROQUEL [Concomitant]
  9. FUROSEMIDE [Concomitant]
  10. DIGITEK [Concomitant]
  11. HYDRALAZINE HCL [Concomitant]
  12. PREVACID [Concomitant]
  13. METOCLOPRAMIDE [Concomitant]
  14. SYNTHROID [Concomitant]
  15. ISOSORBIDE DINITRATE [Concomitant]
  16. CLONIDINE [Concomitant]
  17. BENADRYL [Concomitant]
  18. BACLOFEN [Concomitant]
  19. METOLAZONE [Concomitant]
  20. VICODIN [Concomitant]

REACTIONS (2)
  - RENAL FAILURE [None]
  - VOMITING [None]
